FAERS Safety Report 5267450-5 (Version None)
Quarter: 2007Q1

REPORT INFORMATION
  Report Type: 
  Country: None (occurrence: None)
  Receive Date: 20070316
  Receipt Date: 20070305
  Transmission Date: 20070707
  Serious: Yes (Death, Life-Threatening)
  Sender: FDA-Public Use
  Company Number: PT-ELI_LILLY_AND_COMPANY-PT200703000333

PATIENT
  Age: 76 Year
  Sex: Male

DRUGS (5)
  1. XIGRIS [Suspect]
     Indication: SEPSIS
     Dosage: UNK, UNK
     Route: 042
     Dates: start: 20070207, end: 20070211
  2. ANTIBIOTICS [Concomitant]
     Indication: PNEUMONIA
  3. NORADRENALINE [Concomitant]
     Indication: ANTICOAGULANT THERAPY
  4. RANITIDINE [Concomitant]
     Indication: ANTICOAGULANT THERAPY
  5. ENOXAPARIN SODIUM [Concomitant]
     Indication: ANTICOAGULANT THERAPY
     Dosage: 20 MG, UNK

REACTIONS (1)
  - HAEMORRHAGE INTRACRANIAL [None]
